FAERS Safety Report 8327673-5 (Version None)
Quarter: 2012Q2

REPORT INFORMATION
  Report Type: 
  Country: None (occurrence: None)
  Receive Date: 20120502
  Receipt Date: 20120424
  Transmission Date: 20120825
  Serious: Yes (Death)
  Sender: FDA-Public Use
  Company Number: JP-CELGENEUS-087-50794-12043040

PATIENT
  Sex: Male
  Weight: 42 kg

DRUGS (16)
  1. POLYGAM S/D [Concomitant]
     Route: 065
     Dates: start: 20120218, end: 20120201
  2. KYTRIL [Concomitant]
     Route: 065
     Dates: start: 20120123
  3. VANCOMYCIN [Concomitant]
     Route: 065
     Dates: start: 20120217, end: 20120218
  4. DIFLUCAN [Concomitant]
     Route: 065
     Dates: start: 20120204, end: 20120218
  5. LEVOFLOXACIN [Concomitant]
     Route: 065
     Dates: start: 20111229
  6. ITRACONAZOLE [Concomitant]
     Route: 065
     Dates: start: 20120128, end: 20120204
  7. MEROPENEM [Concomitant]
     Route: 065
     Dates: start: 20120215, end: 20120217
  8. ALBUMIN (HUMAN) [Concomitant]
     Route: 065
     Dates: start: 20120220, end: 20120223
  9. VIDAZA [Suspect]
     Dosage: 75 MILLIGRAM/SQ. METER
     Route: 041
     Dates: start: 20120123, end: 20120128
  10. FLOMOX [Concomitant]
     Route: 065
     Dates: start: 20120210
  11. PRODIF [Concomitant]
     Route: 065
     Dates: start: 20120220, end: 20120222
  12. FAMOTIDINE [Concomitant]
     Route: 065
     Dates: start: 20120121, end: 20120218
  13. NEUTROGIN [Concomitant]
     Route: 065
     Dates: start: 20120217, end: 20120223
  14. FIRSTCIN [Concomitant]
     Route: 065
     Dates: start: 20120210, end: 20120215
  15. DORIPENEM MONOHYDRATE [Concomitant]
     Route: 065
     Dates: start: 20120215, end: 20120224
  16. COTRIM [Concomitant]
     Route: 065
     Dates: start: 20120121, end: 20120218

REACTIONS (6)
  - HYPOALBUMINAEMIA [None]
  - HEPATIC FUNCTION ABNORMAL [None]
  - DISSEMINATED INTRAVASCULAR COAGULATION [None]
  - BLOOD CHOLINESTERASE INCREASED [None]
  - PNEUMONIA [None]
  - RENAL IMPAIRMENT [None]
